FAERS Safety Report 10084418 (Version 1)
Quarter: 2014Q2

REPORT INFORMATION
  Report Type: Spontaneous
  Country: IT (occurrence: IT)
  Receive Date: 20140417
  Receipt Date: 20140417
  Transmission Date: 20141212
  Serious: Yes (Other)
  Sender: FDA-Public Use
  Company Number: IT-ACTAVIS-2014-07818

PATIENT
  Age: 53 Year
  Sex: Female

DRUGS (2)
  1. DOCETAXEL (UNKNOWN) [Suspect]
     Indication: BREAST CANCER
     Dosage: 1 DF, CYCLICAL
     Route: 042
     Dates: start: 20140117, end: 20140324
  2. TRASTUZUMAB [Suspect]
     Indication: BREAST CANCER
     Dosage: 1 DF, CYCLICAL
     Route: 042
     Dates: start: 20140117, end: 20140324

REACTIONS (3)
  - Dyspnoea [Recovered/Resolved]
  - Chest discomfort [Recovered/Resolved]
  - Erythema [Recovered/Resolved]
